FAERS Safety Report 23984823 (Version 1)
Quarter: 2024Q2

REPORT INFORMATION
  Report Type: Spontaneous
  Country: FR (occurrence: FR)
  Receive Date: 20240618
  Receipt Date: 20240618
  Transmission Date: 20240715
  Serious: Yes (Other)
  Sender: FDA-Public Use
  Company Number: FR-AFSSAPS-AVCN2024000323

PATIENT
  Age: 78 Year
  Sex: Female

DRUGS (2)
  1. ECONAZOLE [Suspect]
     Active Substance: ECONAZOLE
     Indication: Product used for unknown indication
     Dosage: UNK (ECONAZOLE ARROW ?MULSION 1%1/3 DE FLACON)
     Route: 048
     Dates: start: 20240412
  2. ALCOHOL [Suspect]
     Active Substance: ALCOHOL
     Indication: Product used for unknown indication
     Dosage: UNK
     Route: 065

REACTIONS (1)
  - Drug abuse [Recovering/Resolving]
